FAERS Safety Report 8031159-5 (Version None)
Quarter: 2012Q1

REPORT INFORMATION
  Report Type: 
  Country: None (occurrence: None)
  Receive Date: 20120109
  Receipt Date: 20101008
  Transmission Date: 20120608
  Serious: Yes (Hospitalization, Other)
  Sender: FDA-Public Use
  Company Number: US-BAYER-201011569NA

PATIENT
  Age: 25 Year
  Sex: Female
  Weight: 49.887 kg

DRUGS (6)
  1. YASMIN [Suspect]
     Indication: CONTRACEPTION
     Dosage: UNK
     Route: 048
     Dates: start: 20040101, end: 20070101
  2. LAXATIVES [Concomitant]
     Indication: LAXATIVE SUPPORTIVE CARE
     Dosage: 1-2/DAY
  3. YASMIN [Suspect]
     Indication: MENSTRUAL CYCLE MANAGEMENT
  4. DIETARY SUPPLEMENT [Concomitant]
     Indication: MEDICAL DIET
     Dosage: UNK UNK, BID
  5. TRAMADOL HCL [Concomitant]
     Indication: SCOLIOSIS
     Dosage: 50 MG/6HOURS; AS NEEDED
     Dates: start: 20070101, end: 20090101
  6. PROMETHAZINE [Concomitant]
     Indication: NAUSEA
     Dosage: 25 MG, QID, AS NEEDED

REACTIONS (16)
  - BLOOD ELECTROLYTES DECREASED [None]
  - BLOOD POTASSIUM DECREASED [None]
  - HYPOKALAEMIA [None]
  - RESPIRATORY ARREST [None]
  - HYPOXIC-ISCHAEMIC ENCEPHALOPATHY [None]
  - CARDIAC ARREST [None]
  - ARRHYTHMIA [None]
  - MYOCARDIAL INFARCTION [None]
  - CARDIAC DISORDER [None]
  - VENTRICULAR FIBRILLATION [None]
  - ACUTE RESPIRATORY FAILURE [None]
  - HYPOMAGNESAEMIA [None]
  - PULSE ABSENT [None]
  - PAIN [None]
  - RESPIRATION ABNORMAL [None]
  - UNEVALUABLE EVENT [None]
